FAERS Safety Report 4704876-X (Version None)
Quarter: 2005Q2

REPORT INFORMATION
  Report Type: 
  Country: None (occurrence: None)
  Receive Date: 20050630
  Receipt Date: 20050630
  Transmission Date: 20051028
  Serious: Yes (Hospitalization)
  Sender: FDA-Public Use
  Company Number: None

PATIENT
  Age: 54 Year
  Sex: Female

DRUGS (1)
  1. CORICIDIN [Suspect]
     Indication: NASOPHARYNGITIS
     Dosage: 1 TAB   ONCE   ORAL
     Route: 048
     Dates: start: 20050331, end: 20050331

REACTIONS (2)
  - MOVEMENT DISORDER [None]
  - SWOLLEN TONGUE [None]
